FAERS Safety Report 6603098-5 (Version None)
Quarter: 2010Q1

REPORT INFORMATION
  Report Type: 
  Country: None (occurrence: None)
  Receive Date: 20100226
  Receipt Date: 20100212
  Transmission Date: 20100710
  Serious: No
  Sender: FDA-Public Use
  Company Number: AU-JNJFOC-20080104912

PATIENT
  Sex: Female
  Weight: 90 kg

DRUGS (70)
  1. GOLIMUMAB [Suspect]
     Indication: RHEUMATOID ARTHRITIS
     Route: 058
  2. GOLIMUMAB [Suspect]
     Route: 058
  3. GOLIMUMAB [Suspect]
     Route: 058
  4. GOLIMUMAB [Suspect]
     Route: 058
  5. GOLIMUMAB [Suspect]
     Route: 058
  6. GOLIMUMAB [Suspect]
     Route: 058
  7. GOLIMUMAB [Suspect]
     Route: 058
  8. METHOTREXATE [Suspect]
     Indication: RHEUMATOID ARTHRITIS
     Dosage: WEEK 51  6 CAPSULES
     Route: 048
  9. METHOTREXATE [Suspect]
     Dosage: WEEK 50  6 CAPSULES
     Route: 048
  10. METHOTREXATE [Suspect]
     Dosage: WEEK 49  6 CAPSULES
     Route: 048
  11. METHOTREXATE [Suspect]
     Dosage: WEEK 48  6 CAPSULES
     Route: 048
  12. METHOTREXATE [Suspect]
     Dosage: WEEK 47  6 CAPSULES
     Route: 048
  13. METHOTREXATE [Suspect]
     Dosage: WEEK 46  6 CAPSULES
     Route: 048
  14. METHOTREXATE [Suspect]
     Dosage: WEEK 45  6 CAPSULES
     Route: 048
  15. METHOTREXATE [Suspect]
     Dosage: WEEK 44  6 CAPSULES
     Route: 048
  16. METHOTREXATE [Suspect]
     Dosage: WEEK 43  6 CAPSULES
     Route: 048
  17. METHOTREXATE [Suspect]
     Dosage: WEEK 42  6 CAPSULES
     Route: 048
  18. METHOTREXATE [Suspect]
     Dosage: WEEK 41  6 CAPSULES
     Route: 048
  19. METHOTREXATE [Suspect]
     Dosage: WEEK 40  6 CAPSULES
     Route: 048
  20. METHOTREXATE [Suspect]
     Dosage: WEEK 39  6 CAPSULES
     Route: 048
  21. METHOTREXATE [Suspect]
     Dosage: WEEK 38  6 CAPSULES
     Route: 048
  22. METHOTREXATE [Suspect]
     Dosage: WEEK 37  6 CAPSULES
     Route: 048
  23. METHOTREXATE [Suspect]
     Dosage: WEEK 36  6 CAPSULES
     Route: 048
  24. METHOTREXATE [Suspect]
     Dosage: WEEK 35  6 CAPSULES
     Route: 048
  25. METHOTREXATE [Suspect]
     Dosage: WEEK 34  6 CAPSULES
     Route: 048
  26. METHOTREXATE [Suspect]
     Dosage: WEEK 33  6 CAPSULES
     Route: 048
  27. METHOTREXATE [Suspect]
     Dosage: WEEK 32  6 CAPSULES
     Route: 048
  28. METHOTREXATE [Suspect]
     Dosage: WEEK 31  6 CAPSULES
     Route: 048
  29. METHOTREXATE [Suspect]
     Dosage: WEEK 30  6 CAPSULES
     Route: 048
  30. METHOTREXATE [Suspect]
     Dosage: WEEK 29  6 CAPSULES
     Route: 048
  31. METHOTREXATE [Suspect]
     Dosage: WEEK 28  6 CAPSULES
     Route: 048
  32. METHOTREXATE [Suspect]
     Dosage: WEEK 27  6 CAPSULES
     Route: 048
  33. METHOTREXATE [Suspect]
     Dosage: WEEK 26  6 CAPSULES
     Route: 048
  34. METHOTREXATE [Suspect]
     Dosage: WEEK 25  6 CAPSULES
     Route: 048
  35. METHOTREXATE [Suspect]
     Dosage: WEEK 24  6 CAPSULES
     Route: 048
  36. METHOTREXATE [Suspect]
     Dosage: WEEK 23  6 CAPSULES
     Route: 048
  37. METHOTREXATE [Suspect]
     Dosage: WEEK 22  6 CAPSULES
     Route: 048
  38. METHOTREXATE [Suspect]
     Dosage: WEEK 21  6 CAPSULES
     Route: 048
  39. METHOTREXATE [Suspect]
     Dosage: WEEK 20  6 CAPSULES
     Route: 048
  40. METHOTREXATE [Suspect]
     Dosage: WEEK 19  6 CAPSULES
     Route: 048
  41. METHOTREXATE [Suspect]
     Dosage: WEEK 18  6 CAPSULES
     Route: 048
  42. METHOTREXATE [Suspect]
     Dosage: WEEK 17  6 CAPSULES
     Route: 048
  43. METHOTREXATE [Suspect]
     Dosage: WEEK 16  6 CAPSULES
     Route: 048
  44. METHOTREXATE [Suspect]
     Dosage: WEEK 15  6 CAPSULES
     Route: 048
  45. METHOTREXATE [Suspect]
     Dosage: WEEK 14  6 CAPSULES
     Route: 048
  46. METHOTREXATE [Suspect]
     Dosage: WEEK 13  6 CAPSULES
     Route: 048
  47. METHOTREXATE [Suspect]
     Dosage: WEEK 12  6 CAPSULES
     Route: 048
  48. METHOTREXATE [Suspect]
     Dosage: WEEK 11  6 CAPSULES
     Route: 048
  49. METHOTREXATE [Suspect]
     Dosage: WEEK 10  6 CAPSULES
     Route: 048
  50. METHOTREXATE [Suspect]
     Dosage: WEEK 9  6 CAPSULES
     Route: 048
  51. METHOTREXATE [Suspect]
     Dosage: WEEK 8  6 CAPSULES
     Route: 048
  52. METHOTREXATE [Suspect]
     Dosage: WEEK 7  6 CAPSULES
     Route: 048
  53. METHOTREXATE [Suspect]
     Dosage: WEEK 6  6 CAPSULES
     Route: 048
  54. METHOTREXATE [Suspect]
     Dosage: WEEK 6  6 CAPSULES
     Route: 048
  55. METHOTREXATE [Suspect]
     Dosage: WEEK 4  6 CAPSULES
     Route: 048
  56. METHOTREXATE [Suspect]
     Dosage: WEEK 3  6 CAPSULES
     Route: 048
  57. METHOTREXATE [Suspect]
     Dosage: WEEK 2  6 CAPSULES
     Route: 048
  58. METHOTREXATE [Suspect]
     Dosage: WEEK 2  6 CAPSULES
     Route: 048
  59. METHOTREXATE [Suspect]
     Dosage: WEEK 0  6 CAPSULES
     Route: 048
  60. METHOTREXATE [Suspect]
     Dosage: WEEK 0-1  6 CAPSULES
     Route: 048
  61. METHOTREXATE [Suspect]
     Dosage: WEEK 0-2  6 CAPSULES
     Route: 048
  62. METHOTREXATE [Suspect]
     Dosage: WEEK 0-3  6 CAPSULES
     Route: 048
  63. KARVEZIDE [Concomitant]
     Route: 048
  64. LEVOTHYROXINE SODIUM [Concomitant]
     Route: 048
  65. ZOCOR [Concomitant]
     Route: 048
  66. ACETAMINOPHEN [Concomitant]
     Route: 048
  67. CIPRAMIL [Concomitant]
     Route: 048
  68. FOLIC ACID [Concomitant]
     Route: 048
  69. ISONIAZID [Concomitant]
     Route: 048
  70. CARTIA XT [Concomitant]
     Route: 048

REACTIONS (1)
  - SQUAMOUS CELL CARCINOMA [None]
